FAERS Safety Report 24368667 (Version 3)
Quarter: 2025Q4

REPORT INFORMATION
  Report Type: Spontaneous
  Country: AU (occurrence: AU)
  Receive Date: 20240926
  Receipt Date: 20251114
  Transmission Date: 20260119
  Serious: Yes (Life-Threatening, Other)
  Sender: CIPLA
  Company Number: AU-CIPLA LTD.-2024AU10554

PATIENT

DRUGS (4)
  1. ALBUTEROL [Suspect]
     Active Substance: ALBUTEROL
     Indication: Product used for unknown indication
     Dosage: UNK, INHALATION POWDER
     Route: 065
  2. ALBUTEROL [Suspect]
     Active Substance: ALBUTEROL
     Dosage: UNK (VENTOLIN INHALER)
     Route: 065
     Dates: start: 1984
  3. ALBUTEROL [Suspect]
     Active Substance: ALBUTEROL
     Dosage: UNK (VENTOLIN INHALER)
     Route: 065
  4. ALBUTEROL [Suspect]
     Active Substance: ALBUTEROL
     Dosage: UNK (VENTOLIN INHALER)
     Route: 065

REACTIONS (4)
  - Near death experience [Unknown]
  - Dyspnoea [Unknown]
  - Panic reaction [Unknown]
  - Product complaint [Unknown]
